FAERS Safety Report 15518810 (Version 3)
Quarter: 2019Q4

REPORT INFORMATION
  Report Type: Spontaneous
  Country: US (occurrence: US)
  Receive Date: 20181017
  Receipt Date: 20191226
  Transmission Date: 20200122
  Serious: Yes (Other)
  Sender: FDA-Public Use
  Company Number: US-ELI_LILLY_AND_COMPANY-US201810006062

PATIENT
  Age: 63 Year
  Sex: Male

DRUGS (5)
  1. OXYBUTYNIN. [Concomitant]
     Active Substance: OXYBUTYNIN CHLORIDE
     Indication: URINARY RETENTION
     Dosage: UNK
     Dates: start: 20181023
  2. CIALIS [Suspect]
     Active Substance: TADALAFIL
     Indication: ERECTILE DYSFUNCTION
     Dosage: 20 MG, PRN
     Route: 065
     Dates: start: 20040910, end: 20041010
  3. METOPROLOL. [Concomitant]
     Active Substance: METOPROLOL
     Indication: HYPERTENSION
     Dosage: UNK
     Dates: start: 20150104
  4. PROVENTIL [Concomitant]
     Active Substance: ALBUTEROL
     Indication: CHRONIC OBSTRUCTIVE PULMONARY DISEASE
     Dosage: UNK
     Dates: start: 20120222
  5. VIAGRA [Suspect]
     Active Substance: SILDENAFIL CITRATE
     Indication: ERECTILE DYSFUNCTION
     Dosage: 50 MG, PRN
     Route: 065
     Dates: start: 20070710, end: 20100305

REACTIONS (11)
  - Actinic keratosis [Recovered/Resolved]
  - Chronic obstructive pulmonary disease [Recovering/Resolving]
  - Prostate cancer [Recovered/Resolved]
  - Coccidioidomycosis [Recovered/Resolved]
  - Gastrooesophageal reflux disease [Recovering/Resolving]
  - Blood cholesterol increased [Recovering/Resolving]
  - Squamous cell carcinoma [Recovered/Resolved]
  - Coronary artery disease [Unknown]
  - Blood testosterone decreased [Recovered/Resolved]
  - Malignant melanoma in situ [Unknown]
  - Adenocarcinoma of colon [Recovered/Resolved]

NARRATIVE: CASE EVENT DATE: 200612
